FAERS Safety Report 11430702 (Version 1)
Quarter: 2015Q3

REPORT INFORMATION
  Report Type: Spontaneous
  Country: US (occurrence: US)
  Receive Date: 20150828
  Receipt Date: 20150828
  Transmission Date: 20151125
  Serious: No
  Sender: FDA-Public Use
  Company Number: US-ROCHE-1280130

PATIENT
  Sex: Female

DRUGS (5)
  1. TELAPREVIR [Suspect]
     Active Substance: TELAPREVIR
     Indication: CHRONIC HEPATITIS C
     Route: 065
     Dates: start: 20130917
  2. ALLEGRA [Concomitant]
     Active Substance: FEXOFENADINE HYDROCHLORIDE
  3. PEGASYS [Suspect]
     Active Substance: PEGINTERFERON ALFA-2A
     Indication: CHRONIC HEPATITIS C
     Dosage: PRO-CLICK
     Route: 058
     Dates: start: 20130917
  4. RIBAVIRIN. [Suspect]
     Active Substance: RIBAVIRIN
     Indication: CHRONIC HEPATITIS C
     Dosage: IN TWO DIVIDED DOSES
     Route: 048
     Dates: start: 20130917
  5. CLARITIN [Concomitant]
     Active Substance: LORATADINE

REACTIONS (6)
  - Productive cough [Unknown]
  - Eye irritation [Unknown]
  - Eye pruritus [Unknown]
  - Back pain [Unknown]
  - Hypersensitivity [Unknown]
  - Nasal congestion [Unknown]
